FAERS Safety Report 16403039 (Version 1)
Quarter: 2019Q2

REPORT INFORMATION
  Report Type: Spontaneous
  Country: US (occurrence: US)
  Receive Date: 20190607
  Receipt Date: 20190607
  Transmission Date: 20190711
  Serious: No
  Sender: FDA-Public Use
  Company Number: US-PHARMING-PHAUS2019000309

PATIENT

DRUGS (30)
  1. RUCONEST [Suspect]
     Active Substance: HUMAN C1-ESTERASE INHIBITOR
     Indication: HEREDITARY ANGIOEDEMA
     Dosage: 2100 IU, AS NEEDED
     Route: 042
     Dates: start: 20190105
  2. GLUCOSAMINE [Concomitant]
     Active Substance: GLUCOSAMINE
  3. PROTONIX 40 [Concomitant]
  4. BERINERT [Concomitant]
     Active Substance: HUMAN C1-ESTERASE INHIBITOR
  5. BACLOFEN. [Concomitant]
     Active Substance: BACLOFEN
  6. HEPARIN [Concomitant]
     Active Substance: HEPARIN SODIUM
  7. FLONASE [Concomitant]
     Active Substance: FLUTICASONE PROPIONATE
  8. IBUPROFEN. [Concomitant]
     Active Substance: IBUPROFEN
  9. ONDANSETRON [Concomitant]
     Active Substance: ONDANSETRON
  10. ACETAMINOPHEN. [Concomitant]
     Active Substance: ACETAMINOPHEN
  11. BIOTIN [Concomitant]
     Active Substance: BIOTIN
  12. WELLBUTRIN [Concomitant]
     Active Substance: BUPROPION HYDROCHLORIDE
  13. ELETRIPTAN. [Concomitant]
     Active Substance: ELETRIPTAN
  14. DIPHENHYDRAMINE. [Concomitant]
     Active Substance: DIPHENHYDRAMINE
  15. VENLAFAXINE [Concomitant]
     Active Substance: VENLAFAXINE HYDROCHLORIDE
  16. MAGNESIUM [Concomitant]
     Active Substance: MAGNESIUM
  17. VITAMIN C [Concomitant]
     Active Substance: ASCORBIC ACID
  18. FENOFIBRATE. [Concomitant]
     Active Substance: FENOFIBRATE
  19. ATORVASTATIN [Concomitant]
     Active Substance: ATORVASTATIN
  20. LEVOTHYROXINE SODIUM. [Concomitant]
     Active Substance: LEVOTHYROXINE SODIUM
  21. SODIUM CHLORIDE. [Concomitant]
     Active Substance: SODIUM CHLORIDE
  22. STERILE WATER [Concomitant]
     Active Substance: WATER
  23. AMLODIPINE BESYLATE. [Concomitant]
     Active Substance: AMLODIPINE BESYLATE
  24. EPINEPHRINE. [Concomitant]
     Active Substance: EPINEPHRINE
  25. TAKHZYRO [Concomitant]
     Active Substance: LANADELUMAB-FLYO
  26. NORMAL SALINE [Concomitant]
     Active Substance: SODIUM CHLORIDE
  27. MULTI-VITAMIN DAILY [Concomitant]
  28. TRAZODONE HYDROCHLORIDE. [Concomitant]
     Active Substance: TRAZODONE HYDROCHLORIDE
  29. FIRAZYR [Concomitant]
     Active Substance: ICATIBANT ACETATE
  30. REGLAN [Concomitant]
     Active Substance: METOCLOPRAMIDE HYDROCHLORIDE

REACTIONS (1)
  - Therapeutic product effect incomplete [Unknown]
